FAERS Safety Report 9344663 (Version 1)
Quarter: 2013Q2

REPORT INFORMATION
  Report Type: Spontaneous
  Country: CN (occurrence: CN)
  Receive Date: 20130612
  Receipt Date: 20130612
  Transmission Date: 20140414
  Serious: Yes (Other)
  Sender: FDA-Public Use
  Company Number: CN-BAYER-2013-069100

PATIENT
  Age: 42 Year
  Sex: Female

DRUGS (2)
  1. MIRENA [Suspect]
     Indication: ADENOMYOSIS
     Dosage: 20 MCG/24HR, CONT
     Route: 015
     Dates: start: 201212
  2. YASMIN [Suspect]
     Dosage: UNK
     Dates: start: 20130603

REACTIONS (5)
  - Abdominal pain [None]
  - Metrorrhagia [None]
  - Device dislocation [Recovered/Resolved]
  - Pre-existing condition improved [Recovering/Resolving]
  - Off label use [None]
